FAERS Safety Report 19017765 (Version 1)
Quarter: 2021Q1

REPORT INFORMATION
  Report Type: Spontaneous
  Country: NL (occurrence: NL)
  Receive Date: 20210317
  Receipt Date: 20210317
  Transmission Date: 20210420
  Serious: Yes (Other)
  Sender: FDA-Public Use
  Company Number: NL-AUROBINDO-AUR-APL-2021-010700

PATIENT
  Sex: Male
  Weight: 78 kg

DRUGS (3)
  1. MONTELUKAST 10MG FILM?COATED TABLETS [Suspect]
     Active Substance: MONTELUKAST SODIUM
     Indication: ASTHMA
     Dosage: 10 MILLIGRAM, ONCE A DAY
     Route: 065
     Dates: start: 202101, end: 20210226
  2. AZELASTINE;FLUTICASONE [Concomitant]
     Active Substance: AZELASTINE HYDROCHLORIDE\FLUTICASONE PROPIONATE
     Indication: PRODUCT USED FOR UNKNOWN INDICATION
     Dosage: UNK (137/50 ?G / DOSE)
     Route: 065
  3. SALBUTAMOL [Concomitant]
     Active Substance: ALBUTEROL
     Indication: PRODUCT USED FOR UNKNOWN INDICATION
     Dosage: UNK (100 ?G / DOSE (MICROGRAMS PER DOSE))
     Route: 065

REACTIONS (2)
  - Emotional poverty [Not Recovered/Not Resolved]
  - Erectile dysfunction [Not Recovered/Not Resolved]
